FAERS Safety Report 18971273 (Version 2)
Quarter: 2021Q2

REPORT INFORMATION
  Report Type: Spontaneous
  Country: PL (occurrence: PL)
  Receive Date: 20210305
  Receipt Date: 20210524
  Transmission Date: 20210717
  Serious: Yes (Hospitalization, Other)
  Sender: FDA-Public Use
  Company Number: PL-SUN PHARMACEUTICAL INDUSTRIES LTD-2021RR-284248

PATIENT
  Age: 28 Year
  Sex: Male

DRUGS (8)
  1. ZIPRASIDONE. [Concomitant]
     Active Substance: ZIPRASIDONE
     Indication: PRODUCT USED FOR UNKNOWN INDICATION
     Dosage: 160 MILLIGRAM, DAILY
     Route: 065
     Dates: start: 20170515, end: 20170629
  2. QUINAGOLIDE [Concomitant]
     Active Substance: QUINAGOLIDE
     Dosage: 75 MILLIGRAM, DAILY
     Route: 065
  3. CLOZAPINE. [Concomitant]
     Active Substance: CLOZAPINE
     Indication: PRODUCT USED FOR UNKNOWN INDICATION
     Dosage: 50 MILLIGRAM, DAILY
     Route: 065
     Dates: start: 201806
  4. OLANZAPINE. [Suspect]
     Active Substance: OLANZAPINE
     Indication: SCHIZOPHRENIA
     Dosage: UNK
     Route: 065
     Dates: start: 2008, end: 201612
  5. OLANZAPINE. [Suspect]
     Active Substance: OLANZAPINE
     Indication: MENTAL IMPAIRMENT
     Dosage: 10 MILLIGRAM, DAILY
     Route: 065
     Dates: start: 20170327, end: 20170427
  6. MIRTAZAPINE. [Suspect]
     Active Substance: MIRTAZAPINE
     Indication: SCHIZOPHRENIA
     Dosage: 15 MILLIGRAM, DAILY
     Route: 065
     Dates: start: 20170602, end: 20170729
  7. ARIPIPRAZOLE. [Suspect]
     Active Substance: ARIPIPRAZOLE
     Indication: SCHIZOPHRENIA
     Dosage: 30 MILLIGRAM, DAILY
     Route: 065
     Dates: start: 20170420, end: 20170608
  8. QUINAGOLIDE [Concomitant]
     Active Substance: QUINAGOLIDE
     Indication: PRODUCT USED FOR UNKNOWN INDICATION
     Dosage: 50 MILLIGRAM, DAILY
     Route: 065

REACTIONS (9)
  - Psychotic disorder [Unknown]
  - Pituitary tumour benign [Not Recovered/Not Resolved]
  - Therapeutic product effect incomplete [Unknown]
  - Product use in unapproved indication [Unknown]
  - Initial insomnia [Unknown]
  - Drug ineffective [Unknown]
  - Hyperprolactinaemia [Recovering/Resolving]
  - Mental impairment [Unknown]
  - Blood prolactin increased [Recovering/Resolving]

NARRATIVE: CASE EVENT DATE: 20170413
